FAERS Safety Report 16081186 (Version 2)
Quarter: 2019Q2

REPORT INFORMATION
  Report Type: Report from Study
  Country: US (occurrence: US)
  Receive Date: 20190316
  Receipt Date: 20190411
  Transmission Date: 20190711
  Serious: Yes (Other)
  Sender: FDA-Public Use
  Company Number: PHEH2019US011308

PATIENT
  Sex: Male

DRUGS (1)
  1. ENTRESTO [Suspect]
     Active Substance: SACUBITRIL\VALSARTAN
     Indication: PRODUCT USED FOR UNKNOWN INDICATION
     Route: 048

REACTIONS (6)
  - Emphysema [Unknown]
  - Dyspnoea [Unknown]
  - Asthenia [Unknown]
  - Seizure [Unknown]
  - Cerebrovascular accident [Unknown]
  - Ejection fraction abnormal [Unknown]
